FAERS Safety Report 4580877-X (Version None)
Quarter: 2005Q1

REPORT INFORMATION
  Report Type: 
  Country: None (occurrence: None)
  Receive Date: 20050214
  Receipt Date: 20040618
  Transmission Date: 20050727
  Serious: No
  Sender: FDA-Public Use
  Company Number: US-GLAXOSMITHKLINE-A0515219A

PATIENT
  Age: 49 Year
  Sex: Female

DRUGS (4)
  1. LAMICTAL [Suspect]
     Indication: BIPOLAR DISORDER
     Dosage: 25MG THREE TIMES PER DAY
     Route: 048
     Dates: start: 20040504
  2. PAXIL [Suspect]
     Indication: MAJOR DEPRESSION
     Dosage: 75MG PER DAY
     Route: 048
     Dates: start: 20021001
  3. ACTIFED [Concomitant]
  4. ATIVAN [Concomitant]

REACTIONS (3)
  - APHTHOUS STOMATITIS [None]
  - RASH [None]
  - RETCHING [None]
